FAERS Safety Report 10222765 (Version 1)
Quarter: 2014Q2

REPORT INFORMATION
  Report Type: Spontaneous
  Country: US (occurrence: US)
  Receive Date: 20140606
  Receipt Date: 20140606
  Transmission Date: 20141212
  Serious: Yes (Other)
  Sender: FDA-Public Use
  Company Number: US-BRISTOL-MYERS SQUIBB COMPANY-20869426

PATIENT
  Sex: Male

DRUGS (1)
  1. ELIQUIS [Suspect]
     Dates: start: 20140517

REACTIONS (1)
  - Anxiety [Unknown]
